FAERS Safety Report 6610656-0 (Version None)
Quarter: 2010Q1

REPORT INFORMATION
  Report Type: 
  Country: None (occurrence: None)
  Receive Date: 20100302
  Receipt Date: 20100222
  Transmission Date: 20100710
  Serious: Yes (Hospitalization)
  Sender: FDA-Public Use
  Company Number: A0846109A

PATIENT

DRUGS (1)
  1. LANOXIN [Suspect]
     Indication: DRUG USE FOR UNKNOWN INDICATION
     Dosage: .25MG UNKNOWN
     Route: 048

REACTIONS (1)
  - LOSS OF CONSCIOUSNESS [None]
